FAERS Safety Report 8534536-9 (Version None)
Quarter: 2012Q3

REPORT INFORMATION
  Report Type: 
  Country: None (occurrence: None)
  Receive Date: 20120724
  Receipt Date: 20120718
  Transmission Date: 20120928
  Serious: Yes (Life-Threatening)
  Sender: FDA-Public Use
  Company Number: FR-ASTRAZENECA-2012SE50637

PATIENT
  Age: 29766 Day
  Sex: Male

DRUGS (3)
  1. SUFENTANYL MYLAN [Suspect]
     Indication: ANAESTHESIA
     Route: 042
     Dates: start: 20120612, end: 20120612
  2. DIPRIVAN [Suspect]
     Indication: ANAESTHESIA
     Route: 042
     Dates: start: 20120612, end: 20120612
  3. TRACRIUM [Suspect]
     Indication: ANAESTHESIA
     Route: 042
     Dates: start: 20120612, end: 20120612

REACTIONS (1)
  - ANAPHYLACTIC SHOCK [None]
